FAERS Safety Report 6617803-5 (Version None)
Quarter: 2010Q1

REPORT INFORMATION
  Report Type: 
  Country: None (occurrence: None)
  Receive Date: 20100308
  Receipt Date: 20100225
  Transmission Date: 20100710
  Serious: Yes (Other)
  Sender: FDA-Public Use
  Company Number: US-AMGEN-QUU395897

PATIENT
  Sex: Male

DRUGS (4)
  1. ENBREL [Suspect]
     Indication: RHEUMATOID ARTHRITIS
     Route: 064
     Dates: start: 20081215, end: 20090301
  2. CLARITIN [Concomitant]
     Route: 064
  3. VITAMIN TAB [Concomitant]
     Route: 064
  4. VICODIN [Concomitant]
     Route: 064

REACTIONS (1)
  - LARGE FOR DATES BABY [None]
